FAERS Safety Report 14426463 (Version 6)
Quarter: 2018Q2

REPORT INFORMATION
  Report Type: Report from Study
  Country: CA (occurrence: CA)
  Receive Date: 20180123
  Receipt Date: 20180403
  Transmission Date: 20180711
  Serious: Yes (Hospitalization, Other)
  Sender: FDA-Public Use
  Company Number: CA-GLAXOSMITHKLINE-CA2017GSK149339

PATIENT
  Age: 67 Year
  Sex: Female

DRUGS (3)
  1. MEPOLIZUMAB [Suspect]
     Active Substance: MEPOLIZUMAB
     Dosage: 100 MG, Z
     Route: 042
  2. MEPOLIZUMAB [Suspect]
     Active Substance: MEPOLIZUMAB
     Dosage: 100 MG, Z
     Route: 042
  3. MEPOLIZUMAB [Suspect]
     Active Substance: MEPOLIZUMAB
     Indication: ASTHMA
     Dosage: 100 MG, Z (MONTHLY)
     Route: 042
     Dates: start: 20170731

REACTIONS (15)
  - Chest discomfort [Not Recovered/Not Resolved]
  - Pneumonia [Unknown]
  - Sputum discoloured [Unknown]
  - Cardiac failure [Unknown]
  - Breast swelling [Not Recovered/Not Resolved]
  - Lower respiratory tract infection [Not Recovered/Not Resolved]
  - Malaise [Not Recovered/Not Resolved]
  - Cough [Unknown]
  - Nasopharyngitis [Unknown]
  - Asthma [Unknown]
  - Fatigue [Unknown]
  - Candida infection [Unknown]
  - Fluid retention [Unknown]
  - Emphysema [Unknown]
  - Wheezing [Unknown]

NARRATIVE: CASE EVENT DATE: 201803
